FAERS Safety Report 4547881-9 (Version None)
Quarter: 2005Q1

REPORT INFORMATION
  Report Type: 
  Country: None (occurrence: None)
  Receive Date: 20050110
  Receipt Date: 20041229
  Transmission Date: 20050727
  Serious: Yes (Other)
  Sender: FDA-Public Use
  Company Number: US-JNJFOC-20050100028

PATIENT
  Sex: Female

DRUGS (2)
  1. REMICADE [Suspect]
     Route: 042
  2. REMICADE [Suspect]
     Indication: RHEUMATOID ARTHRITIS
     Route: 042

REACTIONS (5)
  - ARTHRITIS [None]
  - HYPERSENSITIVITY [None]
  - MYOSITIS [None]
  - POST PROCEDURAL COMPLICATION [None]
  - SURGERY [None]
